FAERS Safety Report 15960917 (Version 1)
Quarter: 2019Q1

REPORT INFORMATION
  Report Type: Spontaneous
  Country: US (occurrence: US)
  Receive Date: 20190214
  Receipt Date: 20190214
  Transmission Date: 20190417
  Serious: No
  Sender: FDA-Public Use
  Company Number: US-MYLANLABS-2019M1009899

PATIENT
  Sex: Male
  Weight: 103 kg

DRUGS (1)
  1. CLONIDINE TRANSDERMAL SYSTEM [Suspect]
     Active Substance: CLONIDINE
     Indication: HYPERTENSION
     Dosage: UNK
     Route: 062
     Dates: start: 20190115

REACTIONS (5)
  - Drug ineffective [Not Recovered/Not Resolved]
  - Sluggishness [Recovered/Resolved]
  - Blood pressure abnormal [Recovered/Resolved]
  - Application site irritation [Recovering/Resolving]
  - Tinnitus [Recovered/Resolved]
